FAERS Safety Report 5638225-X (Version None)
Quarter: 2008Q1

REPORT INFORMATION
  Report Type: 
  Country: None (occurrence: None)
  Receive Date: 20080131
  Receipt Date: 20071226
  Transmission Date: 20080703
  Serious: No
  Sender: FDA-Public Use
  Company Number: 163-21880-07111642

PATIENT
  Age: 58 Year
  Sex: Male
  Weight: 107.9561 kg

DRUGS (1)
  1. REVLIMID [Suspect]
     Indication: MULTIPLE MYELOMA
     Dosage: 25 MG, 1 IN 1 D, ORAL
     Route: 048
     Dates: start: 20071005

REACTIONS (5)
  - BLOOD BLISTER [None]
  - CONSTIPATION [None]
  - DIARRHOEA [None]
  - RASH PAPULAR [None]
  - RED BLOOD CELL COUNT DECREASED [None]
